FAERS Safety Report 5805158-5 (Version None)
Quarter: 2008Q3

REPORT INFORMATION
  Report Type: 
  Country: None (occurrence: None)
  Receive Date: 20080709
  Receipt Date: 20070510
  Transmission Date: 20090109
  Serious: Yes (Other)
  Sender: FDA-Public Use
  Company Number: US-MERCK-0703USA01487

PATIENT
  Age: 60 Year
  Sex: Male

DRUGS (10)
  1. JANUVIA [Suspect]
     Indication: TYPE 2 DIABETES MELLITUS
     Route: 048
     Dates: start: 20070112, end: 20070212
  2. LANTUS [Concomitant]
     Route: 058
  3. NOVOLIN R [Concomitant]
     Route: 058
  4. ACTOS [Concomitant]
     Route: 065
  5. GLIPIZIDE [Concomitant]
     Route: 065
  6. METFORMIN HYDROCHLORIDE [Concomitant]
     Route: 065
  7. LOTENSIN HCT [Concomitant]
     Indication: HYPERTENSION
     Route: 065
  8. VYTORIN [Concomitant]
     Indication: DYSLIPIDAEMIA
     Route: 048
  9. PREVACID [Concomitant]
     Indication: GASTROOESOPHAGEAL REFLUX DISEASE
     Route: 065
  10. IBUPROFEN [Concomitant]
     Indication: PAIN
     Route: 065

REACTIONS (1)
  - PANCREATITIS [None]
